FAERS Safety Report 5087424-7 (Version None)
Quarter: 2006Q3

REPORT INFORMATION
  Report Type: 
  Country: None (occurrence: None)
  Receive Date: 20060822
  Receipt Date: 20060822
  Transmission Date: 20061208
  Serious: Yes (Other)
  Sender: FDA-Public Use
  Company Number: None

PATIENT
  Sex: Female
  Weight: 57.1532 kg

DRUGS (1)
  1. LORTAB [Suspect]
     Indication: RHEUMATOID ARTHRITIS
     Dosage: ONCE PO BID TO TID
     Route: 048
     Dates: start: 20020101

REACTIONS (2)
  - NAUSEA [None]
  - VOMITING [None]
